FAERS Safety Report 4316340-0 (Version None)
Quarter: 2004Q1

REPORT INFORMATION
  Report Type: 
  Country: None (occurrence: None)
  Receive Date: 20040310
  Receipt Date: 20030912
  Transmission Date: 20041129
  Serious: Yes (Other)
  Sender: FDA-Public Use
  Company Number: HQWYE728317SEP03

PATIENT
  Age: 38 Year
  Sex: Male
  Weight: 75.36 kg

DRUGS (1)
  1. PROTONIX [Suspect]
     Indication: GASTROOESOPHAGEAL REFLUX DISEASE
     Dosage: 40 MG 1 X PER 1 DAY ORAL
     Route: 048
     Dates: start: 20030901, end: 20030901

REACTIONS (4)
  - DRY THROAT [None]
  - POSTNASAL DRIP [None]
  - SLEEP DISORDER [None]
  - THROAT IRRITATION [None]
